FAERS Safety Report 24811737 (Version 1)
Quarter: 2025Q1

REPORT INFORMATION
  Report Type: Spontaneous
  Country: CH (occurrence: CH)
  Receive Date: 20250106
  Receipt Date: 20250106
  Transmission Date: 20250408
  Serious: Yes (Other)
  Sender: JUBILANT
  Company Number: CH-JUBILANT CADISTA PHARMACEUTICALS-2024JUB00103

PATIENT

DRUGS (1)
  1. OXCARBAZEPINE [Suspect]
     Active Substance: OXCARBAZEPINE

REACTIONS (2)
  - Cholestatic liver injury [Recovered/Resolved]
  - Polyserositis [Recovered/Resolved]
